FAERS Safety Report 7229375-5 (Version None)
Quarter: 2011Q1

REPORT INFORMATION
  Report Type: 
  Country: None (occurrence: None)
  Receive Date: 20110117
  Receipt Date: 20110107
  Transmission Date: 20110831
  Serious: Yes (Hospitalization)
  Sender: FDA-Public Use
  Company Number: A0901468A

PATIENT
  Age: 44 Year
  Sex: Female
  Weight: 63.5 kg

DRUGS (11)
  1. NEXIUM [Concomitant]
     Dosage: 40MG PER DAY
     Route: 048
  2. PREDNISONE [Concomitant]
     Dosage: 1TAB PER DAY
     Route: 048
  3. LASIX [Concomitant]
     Dosage: 40MGD PER DAY
     Route: 048
  4. RYTHMOL [Suspect]
     Dosage: 150MG THREE TIMES PER DAY
     Route: 048
  5. WELLBUTRIN [Suspect]
     Dosage: 100MG TWICE PER DAY
     Route: 048
  6. PROZAC [Suspect]
     Dosage: 20MG TWICE PER DAY
     Route: 048
  7. FLOLAN [Suspect]
     Dosage: 30.56NGKM UNKNOWN
     Route: 042
     Dates: start: 20080912
  8. LISINOPRIL [Concomitant]
     Dosage: 5MG PER DAY
     Route: 048
  9. CLONAZEPAM [Concomitant]
     Dosage: .5MG TWICE PER DAY
     Route: 048
  10. FLOLAN [Suspect]
     Route: 042
     Dates: start: 20080912
  11. KLOR-CON [Concomitant]
     Dosage: 20MEQ TWICE PER DAY
     Route: 048

REACTIONS (5)
  - HEART RATE INCREASED [None]
  - DIZZINESS [None]
  - CONFUSIONAL STATE [None]
  - CARDIOVERSION [None]
  - TREATMENT NONCOMPLIANCE [None]
